FAERS Safety Report 24895901 (Version 1)
Quarter: 2025Q1

REPORT INFORMATION
  Report Type: Spontaneous
  Country: US (occurrence: None)
  Receive Date: 20250128
  Receipt Date: 20250128
  Transmission Date: 20250409
  Serious: Yes (Death)
  Sender: FDA-CTU
  Company Number: None

PATIENT
  Age: 67 Year
  Sex: Female
  Weight: 59.6 kg

DRUGS (3)
  1. DURVALUMAB [Suspect]
     Active Substance: DURVALUMAB
  2. CISPLATIN [Suspect]
     Active Substance: CISPLATIN
  3. GEMCITABINE [Suspect]
     Active Substance: GEMCITABINE

REACTIONS (7)
  - Encephalopathy [None]
  - Sepsis [None]
  - Hypotension [None]
  - Intestinal perforation [None]
  - Heart sounds abnormal [None]
  - Pupil fixed [None]
  - Pulse absent [None]

NARRATIVE: CASE EVENT DATE: 20250127
